FAERS Safety Report 9346912 (Version 2)
Quarter: 2013Q3

REPORT INFORMATION
  Report Type: Spontaneous
  Country: US (occurrence: US)
  Receive Date: 20130613
  Receipt Date: 20130711
  Transmission Date: 20140515
  Serious: Yes (Other)
  Sender: FDA-Public Use
  Company Number: PHEH2013US012704

PATIENT
  Sex: Female

DRUGS (3)
  1. EXFORGE [Suspect]
     Dosage: 1 DF, (320 MG VALS/ 10 MG AMLO)
  2. VITAMIN D [Concomitant]
  3. ONE A DAY WOMEN^S [Concomitant]

REACTIONS (1)
  - Macular degeneration [Unknown]
